FAERS Safety Report 10724785 (Version 2)
Quarter: 2016Q3

REPORT INFORMATION
  Report Type: Spontaneous
  Country: DK (occurrence: DK)
  Receive Date: 20150120
  Receipt Date: 20160916
  Transmission Date: 20161109
  Serious: Yes (Hospitalization)
  Sender: FDA-Public Use
  Company Number: DK-JNJFOC-20150104291

PATIENT
  Age: 51 Year
  Sex: Female

DRUGS (7)
  1. TRUXAL [Suspect]
     Active Substance: CHLORPROTHIXENE
     Indication: ANXIETY
     Route: 048
     Dates: end: 20120316
  2. LYSANTIN [Suspect]
     Active Substance: ORPHENADRINE HYDROCHLORIDE
     Indication: PRODUCT USED FOR UNKNOWN INDICATION
     Route: 048
     Dates: start: 20120309
  3. TRUXAL [Suspect]
     Active Substance: CHLORPROTHIXENE
     Indication: RESTLESSNESS
     Route: 048
     Dates: end: 20120316
  4. SEROQUEL [Suspect]
     Active Substance: QUETIAPINE FUMARATE
     Indication: MENTAL DISORDER
     Route: 048
     Dates: start: 20120316
  5. RISPERDAL [Suspect]
     Active Substance: RISPERIDONE
     Indication: MENTAL DISORDER
     Route: 065
     Dates: end: 20120309
  6. CITALOPRAM [Suspect]
     Active Substance: CITALOPRAM HYDROBROMIDE
     Indication: PRODUCT USED FOR UNKNOWN INDICATION
     Route: 065
     Dates: start: 2012, end: 2012
  7. SERTRALIN HCL [Suspect]
     Active Substance: SERTRALINE HYDROCHLORIDE
     Indication: ANXIETY
     Route: 048

REACTIONS (7)
  - Mental disorder [Unknown]
  - Dyskinesia [Unknown]
  - Dyskinesia [Recovered/Resolved]
  - Hospitalisation [Unknown]
  - Pain in jaw [Recovered/Resolved]
  - Oromandibular dystonia [Recovering/Resolving]
  - Trigeminal neuralgia [Unknown]

NARRATIVE: CASE EVENT DATE: 2008
